FAERS Safety Report 6555580-7 (Version None)
Quarter: 2010Q1

REPORT INFORMATION
  Report Type: 
  Country: None (occurrence: None)
  Receive Date: 20100128
  Receipt Date: 20100120
  Transmission Date: 20100710
  Serious: Yes (Hospitalization)
  Sender: FDA-Public Use
  Company Number: JP-SANOFI-AVENTIS-2009SA002784

PATIENT
  Age: 32 Year
  Sex: Male
  Weight: 58 kg

DRUGS (2)
  1. ARAVA [Suspect]
     Indication: RHEUMATOID ARTHRITIS
     Route: 048
     Dates: start: 20080515, end: 20090101
  2. ARAVA [Suspect]

REACTIONS (1)
  - DIVERTICULITIS [None]
